FAERS Safety Report 19548704 (Version 1)
Quarter: 2021Q3

REPORT INFORMATION
  Report Type: Spontaneous
  Country: IN (occurrence: IN)
  Receive Date: 20210715
  Receipt Date: 20210715
  Transmission Date: 20211014
  Serious: Yes (Hospitalization)
  Sender: FDA-Public Use
  Company Number: IN-CIPLA LTD.-2021IN04915

PATIENT

DRUGS (3)
  1. CISPLATIN. [Suspect]
     Active Substance: CISPLATIN
     Indication: OVARIAN GERM CELL TERATOMA
     Dosage: UNK, 3 CYCLES
     Route: 065
     Dates: start: 2017, end: 201710
  2. BLEOMYCIN SULPHATE [Suspect]
     Active Substance: BLEOMYCIN SULFATE
     Indication: OVARIAN GERM CELL TERATOMA
     Dosage: UNK, 3 CYCLES
     Route: 065
     Dates: start: 2017, end: 201710
  3. ETOPOSIDE. [Suspect]
     Active Substance: ETOPOSIDE
     Indication: OVARIAN GERM CELL TERATOMA
     Dosage: UNK, 3 CYCLES
     Route: 065
     Dates: start: 2017, end: 201710

REACTIONS (1)
  - Teratoma benign [Recovered/Resolved]

NARRATIVE: CASE EVENT DATE: 2017
